FAERS Safety Report 6542578-8 (Version None)
Quarter: 2010Q1

REPORT INFORMATION
  Report Type: 
  Country: None (occurrence: None)
  Receive Date: 20100119
  Receipt Date: 20100105
  Transmission Date: 20100710
  Serious: Yes (Hospitalization)
  Sender: FDA-Public Use
  Company Number: JP-SANOFI-AVENTIS-2009SA010431

PATIENT
  Age: 71 Year
  Sex: Female

DRUGS (12)
  1. ELPLAT [Suspect]
     Indication: LARGE INTESTINE CARCINOMA
     Route: 041
     Dates: start: 20091208, end: 20091208
  2. CALCIUM LEVOFOLINATE [Suspect]
     Indication: LARGE INTESTINE CARCINOMA
     Route: 041
     Dates: start: 20091208, end: 20091208
  3. 5-FU [Suspect]
     Indication: LARGE INTESTINE CARCINOMA
     Route: 040
     Dates: start: 20091208, end: 20091208
  4. 5-FU [Suspect]
     Route: 041
     Dates: start: 20091208, end: 20091208
  5. AVASTIN [Suspect]
     Indication: LARGE INTESTINE CARCINOMA
     Route: 041
     Dates: start: 20081208, end: 20081208
  6. OSELTAMIVIR PHOSPHATE [Suspect]
     Indication: INFLUENZA
     Route: 048
     Dates: start: 20091208, end: 20091209
  7. PRIMPERAN TAB [Concomitant]
     Indication: ABDOMINAL DISCOMFORT
     Route: 048
     Dates: start: 20091209, end: 20091210
  8. RAMOSETRON HYDROCHLORIDE [Concomitant]
     Indication: PROPHYLAXIS OF NAUSEA AND VOMITING
     Route: 048
     Dates: start: 20091209, end: 20091211
  9. DOMPERIDONE [Concomitant]
     Indication: ABDOMINAL DISCOMFORT
     Dates: start: 20091209, end: 20091211
  10. AMINO ACIDS/CARBOHYDRATES/MINERALS/VITAMINS, [Concomitant]
     Dates: start: 20091210
  11. FRUCTOSE/GLYCEROL [Concomitant]
     Dates: start: 20091210
  12. RADICUT [Concomitant]
     Dates: start: 20091210

REACTIONS (1)
  - ALTERED STATE OF CONSCIOUSNESS [None]
